FAERS Safety Report 26023136 (Version 2)
Quarter: 2025Q4

REPORT INFORMATION
  Report Type: Spontaneous
  Country: US (occurrence: US)
  Receive Date: 20251110
  Receipt Date: 20251222
  Transmission Date: 20260118
  Serious: Yes (Other)
  Sender: APELLIS PHARMACEUTICALS
  Company Number: US-APELLIS-2025-APL-0002106

PATIENT

DRUGS (1)
  1. SYFOVRE [Suspect]
     Active Substance: PEGCETACOPLAN
     Indication: Dry age-related macular degeneration
     Dosage: EVERY 8 WEEKS
     Dates: start: 20240717

REACTIONS (2)
  - Vitritis [Not Recovered/Not Resolved]
  - Iritis [Not Recovered/Not Resolved]

NARRATIVE: CASE EVENT DATE: 20251018
